FAERS Safety Report 14280251 (Version 3)
Quarter: 2021Q1

REPORT INFORMATION
  Report Type: Report from Study
  Country: GB (occurrence: GB)
  Receive Date: 20171213
  Receipt Date: 20210116
  Transmission Date: 20210419
  Serious: Yes (Hospitalization)
  Sender: FDA-Public Use
  Company Number: GB-SHIRE-GB201730198

PATIENT

DRUGS (22)
  1. IDURSULFASE [Suspect]
     Active Substance: IDURSULFASE
     Dosage: UNK
  2. CHLORPHENAMINE [Concomitant]
     Active Substance: CHLORPHENIRAMINE MALEATE
     Indication: INFUSION RELATED REACTION
     Dosage: UNK
     Route: 042
     Dates: start: 20161019, end: 20161019
  3. IDURSULFASE [Suspect]
     Active Substance: IDURSULFASE
     Dosage: 0.41 MG/KG, 1X/WEEK
     Route: 042
     Dates: start: 20160817, end: 20181212
  4. SYTRON [Concomitant]
     Indication: IRON DEFICIENCY
     Dosage: UNK
     Route: 048
     Dates: start: 201709, end: 201710
  5. CHLORPHENAMINE [Concomitant]
     Active Substance: CHLORPHENIRAMINE MALEATE
     Dosage: UNK
     Route: 042
     Dates: start: 20161109, end: 20161207
  6. CETIRIZINE [Concomitant]
     Active Substance: CETIRIZINE HYDROCHLORIDE
     Indication: PREMEDICATION
     Dosage: UNK
     Route: 048
     Dates: start: 20160817, end: 20160902
  7. RANITIDINE. [Concomitant]
     Active Substance: RANITIDINE
     Dosage: UNK
     Route: 042
     Dates: start: 20161026
  8. OMEPRAZOLE. [Concomitant]
     Active Substance: OMEPRAZOLE
     Indication: PRODUCT USED FOR UNKNOWN INDICATION
     Dosage: UNK
     Route: 054
     Dates: start: 201807
  9. HYDROCORTISONE. [Concomitant]
     Active Substance: HYDROCORTISONE
     Indication: INFUSION RELATED REACTION
     Dosage: UNK
     Route: 042
     Dates: start: 20161019, end: 20161019
  10. HYDROCORTISONE. [Concomitant]
     Active Substance: HYDROCORTISONE
     Indication: PREMEDICATION
     Dosage: UNK
     Route: 042
     Dates: start: 20161026
  11. IDURSULFASE [Suspect]
     Active Substance: IDURSULFASE
     Indication: MUCOPOLYSACCHARIDOSIS II
     Dosage: 0.41 MG/KG, 1X/WEEK
     Route: 065
     Dates: start: 20160817
  12. PARACETAMOL [Concomitant]
     Active Substance: ACETAMINOPHEN
     Dosage: UNK
     Route: 048
     Dates: start: 20170309
  13. IDURSULFASE [Suspect]
     Active Substance: IDURSULFASE
     Dosage: UNK
  14. PARACETAMOL [Concomitant]
     Active Substance: ACETAMINOPHEN
     Indication: PREMEDICATION
     Dosage: UNK
     Route: 048
     Dates: start: 20160817, end: 20160921
  15. RANITIDINE. [Concomitant]
     Active Substance: RANITIDINE
     Indication: INFUSION RELATED REACTION
     Dosage: UNK
     Route: 042
     Dates: start: 20161019, end: 20161019
  16. IDURSULFASE [Suspect]
     Active Substance: IDURSULFASE
     Dosage: 0.3 MILLIGRAM/KILOGRAM, 1/WEEK
     Route: 042
     Dates: start: 20181213
  17. DICLOFENAC [Concomitant]
     Active Substance: DICLOFENAC
     Indication: MUSCULOSKELETAL DISCOMFORT
     Dosage: UNK
     Route: 065
     Dates: start: 201807
  18. CHLORPHENAMINE [Concomitant]
     Active Substance: CHLORPHENIRAMINE MALEATE
     Indication: PREMEDICATION
     Dosage: UNK
     Route: 042
     Dates: start: 20160930
  19. MELATONIN [Concomitant]
     Active Substance: MELATONIN
     Indication: INSOMNIA
     Dosage: UNK
     Route: 048
     Dates: start: 20160824
  20. IBUPROFEN. [Concomitant]
     Active Substance: IBUPROFEN
     Indication: INFUSION RELATED REACTION
     Dosage: UNK
     Route: 048
     Dates: start: 20161019, end: 20161019
  21. IBUPROFEN. [Concomitant]
     Active Substance: IBUPROFEN
     Indication: PYREXIA
     Dosage: UNK
     Route: 048
     Dates: start: 20161026, end: 20161026
  22. PREDNISOLONE. [Concomitant]
     Active Substance: PREDNISOLONE
     Indication: PREMEDICATION
     Dosage: UNK
     Route: 048
     Dates: start: 20161025, end: 20170905

REACTIONS (4)
  - Lip swelling [Recovered/Resolved]
  - Central venous catheterisation [Unknown]
  - Swelling of eyelid [Recovered/Resolved]
  - Flushing [Recovered/Resolved]

NARRATIVE: CASE EVENT DATE: 20161019
